FAERS Safety Report 6268585-0 (Version None)
Quarter: 2009Q3

REPORT INFORMATION
  Report Type: 
  Country: None (occurrence: None)
  Receive Date: 20090715
  Receipt Date: 20090709
  Transmission Date: 20100115
  Serious: Yes (Hospitalization)
  Sender: FDA-Public Use
  Company Number: US-BRISTOL-MYERS SQUIBB COMPANY-14663165

PATIENT
  Age: 59 Year
  Sex: Female

DRUGS (1)
  1. CETUXIMAB [Suspect]
     Indication: HEAD AND NECK CANCER
     Dosage: INITIATED ON 15JAN09
     Route: 042
     Dates: start: 20090115, end: 20090522

REACTIONS (2)
  - HYPONATRAEMIA [None]
  - PAIN IN EXTREMITY [None]
